FAERS Safety Report 16496404 (Version 1)
Quarter: 2019Q2

REPORT INFORMATION
  Report Type: Spontaneous
  Country: US (occurrence: US)
  Receive Date: 20190628
  Receipt Date: 20190628
  Transmission Date: 20190711
  Serious: No
  Sender: FDA-Public Use
  Company Number: US-PRINSTON PHARMACEUTICAL INC.-2019PRN00051

PATIENT
  Sex: Male

DRUGS (2)
  1. BUPROPION HYDROCHLORIDE. [Suspect]
     Active Substance: BUPROPION HYDROCHLORIDE
     Indication: ANXIETY
     Dosage: UNK
     Dates: start: 2017
  2. BUPROPION HYDROCHLORIDE (WATSON) [Suspect]
     Active Substance: BUPROPION HYDROCHLORIDE
     Dosage: UNK

REACTIONS (5)
  - Presyncope [Unknown]
  - Alopecia [Unknown]
  - Cardiac flutter [Unknown]
  - Heart rate increased [Unknown]
  - Dizziness [Unknown]

NARRATIVE: CASE EVENT DATE: 2017
